FAERS Safety Report 7496097-5 (Version None)
Quarter: 2011Q2

REPORT INFORMATION
  Report Type: 
  Country: None (occurrence: None)
  Receive Date: 20110513
  Receipt Date: 20110510
  Transmission Date: 20111010
  Serious: Yes (Hospitalization, Other)
  Sender: FDA-Public Use
  Company Number: 20109829

PATIENT
  Age: 45 Year
  Sex: Male

DRUGS (1)
  1. LIORESAL [Suspect]
     Dosage: 2000 MCG/ML DAILY, INTRATHECAL; 160MCG/DAILY'
     Route: 039

REACTIONS (3)
  - IRRITABILITY [None]
  - MUSCLE SPASTICITY [None]
  - BODY TEMPERATURE INCREASED [None]
